FAERS Safety Report 6674135-7 (Version None)
Quarter: 2010Q2

REPORT INFORMATION
  Report Type: 
  Country: None (occurrence: None)
  Receive Date: 20100407
  Receipt Date: 20100326
  Transmission Date: 20101027
  Serious: Yes (Hospitalization)
  Sender: FDA-Public Use
  Company Number: 009268

PATIENT
  Sex: Male

DRUGS (1)
  1. CILOSTAZOL [Suspect]
     Dosage: 100 MG,  ORAL
     Route: 048
     Dates: start: 20100301, end: 20100301

REACTIONS (1)
  - VENTRICULAR ARRHYTHMIA [None]
